FAERS Safety Report 6512228-5 (Version None)
Quarter: 2009Q4

REPORT INFORMATION
  Report Type: 
  Country: None (occurrence: None)
  Receive Date: 20091222
  Receipt Date: 20090806
  Transmission Date: 20100525
  Serious: No
  Sender: FDA-Public Use
  Company Number: US-ASTRAZENECA-2009UW21878

PATIENT
  Age: 65 Year
  Sex: Female
  Weight: 72.6 kg

DRUGS (5)
  1. CRESTOR [Suspect]
     Route: 048
     Dates: start: 20090601
  2. CRESTOR [Suspect]
     Route: 048
     Dates: start: 20090701
  3. WELLBUTRIN [Concomitant]
  4. BABY ASPIRIN [Concomitant]
  5. VITAMINS [Concomitant]

REACTIONS (1)
  - VISION BLURRED [None]
